FAERS Safety Report 16475062 (Version 1)
Quarter: 2019Q2

REPORT INFORMATION
  Report Type: Spontaneous
  Country: US (occurrence: US)
  Receive Date: 20190515
  Receipt Date: 20190515
  Transmission Date: 20190711
  Serious: Yes (Other)
  Sender: FDA-Public Use
  Company Number: None

PATIENT
  Age: 62 Year
  Sex: Male

DRUGS (1)
  1. WARFARIN [Suspect]
     Active Substance: WARFARIN
     Indication: DEEP VEIN THROMBOSIS
     Route: 048

REACTIONS (7)
  - Asthenia [None]
  - Dizziness [None]
  - Haemorrhage [None]
  - Haemoglobin decreased [None]
  - Gastric haemorrhage [None]
  - Haematochezia [None]
  - Haematocrit decreased [None]

NARRATIVE: CASE EVENT DATE: 20190227
